FAERS Safety Report 25845205 (Version 1)
Quarter: 2025Q3

REPORT INFORMATION
  Report Type: Spontaneous
  Country: US (occurrence: US)
  Receive Date: 20250925
  Receipt Date: 20250925
  Transmission Date: 20251021
  Serious: Yes (Other)
  Sender: AUROBINDO
  Company Number: US-AUROBINDO-AUR-APL-2025-048116

PATIENT

DRUGS (1)
  1. FINASTERIDE [Suspect]
     Active Substance: FINASTERIDE
     Indication: Product used for unknown indication
     Route: 065

REACTIONS (6)
  - Erectile dysfunction [Unknown]
  - Breast tenderness [Unknown]
  - Breast enlargement [Unknown]
  - Libido decreased [Unknown]
  - Mood swings [Unknown]
  - Wrong technique in product usage process [Unknown]
